FAERS Safety Report 5410908-6 (Version None)
Quarter: 2007Q3

REPORT INFORMATION
  Report Type: 
  Country: None (occurrence: None)
  Receive Date: 20070810
  Receipt Date: 20070625
  Transmission Date: 20080115
  Serious: No
  Sender: FDA-Public Use
  Company Number: FI-ASTRAZENECA-2007SE03772

PATIENT

DRUGS (2)
  1. SEROQUEL [Suspect]
     Route: 048
     Dates: start: 20041001, end: 20060901
  2. SEROQUEL [Suspect]
     Route: 048
     Dates: start: 20060901

REACTIONS (2)
  - NEUTROPHIL COUNT DECREASED [None]
  - WHITE BLOOD CELL COUNT DECREASED [None]
